FAERS Safety Report 5391143-7 (Version None)
Quarter: 2007Q3

REPORT INFORMATION
  Report Type: 
  Country: None (occurrence: None)
  Receive Date: 20070719
  Receipt Date: 20070712
  Transmission Date: 20080115
  Serious: Yes (Other)
  Sender: FDA-Public Use
  Company Number: PHBS2007BR11854

PATIENT
  Age: 78 Year
  Sex: Male
  Weight: 67 kg

DRUGS (8)
  1. DIOVAN [Suspect]
     Dosage: 160 MG, QHS
     Route: 048
  2. PLAVIX [Concomitant]
     Dosage: 75 MG, QD
     Route: 048
  3. LEVODOPA [Concomitant]
     Dosage: 500 MG, Q12H
     Route: 048
  4. TRESTON [Concomitant]
     Dosage: 1 DF, QHS
     Route: 048
  5. AMLODIPINE [Concomitant]
     Dosage: 5 MG, QD
     Route: 048
  6. ASPIRIN [Concomitant]
     Dosage: 100 MG, QD
     Route: 048
  7. FRONTAL [Concomitant]
     Dosage: 0.25 MG, QHS
     Route: 048
  8. FLUOXETINE [Concomitant]
     Dosage: 20 MG, QD
     Route: 048

REACTIONS (1)
  - STENT PLACEMENT [None]
